FAERS Safety Report 17461905 (Version 1)
Quarter: 2020Q1

REPORT INFORMATION
  Report Type: Spontaneous
  Country: US (occurrence: US)
  Receive Date: 20200226
  Receipt Date: 20200226
  Transmission Date: 20200409
  Serious: No
  Sender: FDA-Public Use
  Company Number: US-NOVOPROD-661310

PATIENT
  Age: 48 Year
  Sex: Female

DRUGS (1)
  1. SAXENDA [Suspect]
     Active Substance: LIRAGLUTIDE
     Indication: WEIGHT DECREASED
     Dosage: 1.8 MG
     Route: 058
     Dates: start: 20190401, end: 20190422

REACTIONS (1)
  - Pharyngitis streptococcal [Recovering/Resolving]

NARRATIVE: CASE EVENT DATE: 20190423
